FAERS Safety Report 7495455-2 (Version None)
Quarter: 2011Q2

REPORT INFORMATION
  Report Type: 
  Country: None (occurrence: None)
  Receive Date: 20110523
  Receipt Date: 20110511
  Transmission Date: 20111010
  Serious: Yes (Other)
  Sender: FDA-Public Use
  Company Number: CZ-AMGEN-CZESP2011024245

PATIENT
  Age: 81 Year
  Sex: Female

DRUGS (7)
  1. PROLIA [Suspect]
     Indication: OSTEOPOROSIS POSTMENOPAUSAL
     Dosage: 60 MG, UNK
     Route: 058
     Dates: start: 20110422
  2. SYMBICORT [Concomitant]
     Dosage: UNK
     Route: 055
  3. GLUCOSAMINSULFAT [Concomitant]
  4. EUPHYLLIN                          /00003701/ [Concomitant]
     Dosage: UNK UNK, QD
     Route: 048
  5. ATROVENT [Concomitant]
     Dosage: UNK UNK, PRN
     Route: 055
  6. ISOPTIN                            /00014302/ [Concomitant]
     Route: 048
  7. MODURETIC 5-50 [Concomitant]
     Route: 048

REACTIONS (4)
  - ARTHRALGIA [None]
  - JOINT SWELLING [None]
  - DYSURIA [None]
  - OEDEMA PERIPHERAL [None]
